FAERS Safety Report 7138826-6 (Version None)
Quarter: 2010Q4

REPORT INFORMATION
  Report Type: 
  Country: None (occurrence: None)
  Receive Date: 20101206
  Receipt Date: 20101129
  Transmission Date: 20110411
  Serious: Yes (Other)
  Sender: FDA-Public Use
  Company Number: IL-PURDUE-GBR-2010-0007455

PATIENT
  Sex: Male

DRUGS (2)
  1. BUTRANS TRANSDERMAL PATCH [Suspect]
     Indication: SPINAL COLUMN STENOSIS
     Dosage: 10 MCG, Q1H
     Route: 062
  2. BUTRANS TRANSDERMAL PATCH [Suspect]
     Dosage: 5 MCG, Q1H
     Route: 062

REACTIONS (1)
  - BLOOD PRESSURE INCREASED [None]
